FAERS Safety Report 20832013 (Version 1)
Quarter: 2022Q2

REPORT INFORMATION
  Report Type: 
  Country: None (occurrence: None)
  Receive Date: 20220516
  Receipt Date: 20220516
  Transmission Date: 20220721
  Serious: No
  Sender: FDA-Public Use
  Company Number: ROCHE-3095040

PATIENT
  Age: 69 Year
  Weight: 80.358 kg

DRUGS (1)
  1. OCREVUS [Suspect]
     Active Substance: OCRELIZUMAB
     Dates: start: 202005

REACTIONS (3)
  - Oral herpes [None]
  - Herpes virus infection [None]
  - Hypoaesthesia [None]

NARRATIVE: CASE EVENT DATE: 20220505
